FAERS Safety Report 13973354 (Version 1)
Quarter: 2017Q3

REPORT INFORMATION
  Report Type: Report from Study
  Country: PH (occurrence: PH)
  Receive Date: 20170914
  Receipt Date: 20170914
  Transmission Date: 20171128
  Serious: Yes (Other)
  Sender: FDA-Public Use
  Company Number: PH-009507513-1709PHL005021

PATIENT
  Sex: Female

DRUGS (2)
  1. JANUMET [Suspect]
     Active Substance: METFORMIN HYDROCHLORIDE\SITAGLIPTIN PHOSPHATE
     Indication: DIABETES MELLITUS
     Dosage: 50/1000 MG, ONE TABLET, ONCE A DAY
     Route: 048
     Dates: start: 2012
  2. AVASTIN [Concomitant]
     Active Substance: BEVACIZUMAB

REACTIONS (4)
  - Hernia repair [Recovered/Resolved with Sequelae]
  - Hypertension [Unknown]
  - Blood cholesterol increased [Unknown]
  - Inappropriate schedule of drug administration [Unknown]

NARRATIVE: CASE EVENT DATE: 2012
